FAERS Safety Report 5233947-7 (Version None)
Quarter: 2007Q1

REPORT INFORMATION
  Report Type: 
  Country: None (occurrence: None)
  Receive Date: 20070208
  Receipt Date: 20070130
  Transmission Date: 20070707
  Serious: Yes (Hospitalization)
  Sender: FDA-Public Use
  Company Number: JP-PFIZER INC-2007003088

PATIENT
  Age: 70 Year
  Sex: Female

DRUGS (2)
  1. ZITHROMAC [Suspect]
     Dosage: DAILY DOSE:500MG
     Route: 048
  2. MUCODYNE [Concomitant]
     Route: 048

REACTIONS (2)
  - ARTHRALGIA [None]
  - HYPERTHERMIA [None]
